FAERS Safety Report 7431692-0 (Version None)
Quarter: 2011Q2

REPORT INFORMATION
  Report Type: 
  Country: None (occurrence: None)
  Receive Date: 20110422
  Receipt Date: 20110414
  Transmission Date: 20111010
  Serious: Yes (Hospitalization)
  Sender: FDA-Public Use
  Company Number: US-BIOGENIDEC-2011BI006492

PATIENT
  Age: 66 Year
  Sex: Female
  Weight: 70 kg

DRUGS (1)
  1. TYSABRI [Suspect]
     Indication: MULTIPLE SCLEROSIS
     Route: 042
     Dates: start: 20070315

REACTIONS (9)
  - MULTIPLE SCLEROSIS RELAPSE [None]
  - THROMBOSIS [None]
  - URINARY RETENTION [None]
  - NEPHROLITHIASIS [None]
  - MUSCULAR WEAKNESS [None]
  - TACHYCARDIA [None]
  - NEUROGENIC BLADDER [None]
  - UROSEPSIS [None]
  - FALL [None]
